FAERS Safety Report 20954574 (Version 3)
Quarter: 2023Q2

REPORT INFORMATION
  Report Type: Spontaneous
  Country: US (occurrence: US)
  Receive Date: 20220614
  Receipt Date: 20230619
  Transmission Date: 20230722
  Serious: No
  Sender: FDA-Public Use
  Company Number: US-PFM-2021-12521

PATIENT
  Sex: Female
  Weight: 10.1 kg

DRUGS (2)
  1. HEMANGEOL [Suspect]
     Active Substance: PROPRANOLOL HYDROCHLORIDE
     Indication: Haemangioma
     Dosage: 0.9 ML, TID (3/DAY)
     Route: 065
  2. HEMANGEOL [Suspect]
     Active Substance: PROPRANOLOL HYDROCHLORIDE
     Dosage: 3 ML, BID (2/DAY)
     Route: 048

REACTIONS (4)
  - Condition aggravated [Unknown]
  - Haemangioma [Unknown]
  - Inappropriate schedule of product administration [Unknown]
  - Off label use [Unknown]
